FAERS Safety Report 13347581 (Version 2)
Quarter: 2017Q2

REPORT INFORMATION
  Report Type: Spontaneous
  Country: IN (occurrence: IN)
  Receive Date: 20170317
  Receipt Date: 20170413
  Transmission Date: 20170830
  Serious: Yes (Life-Threatening, Hospitalization, Other)
  Sender: FDA-Public Use
  Company Number: IN-GLAXOSMITHKLINE-IN2017038305

PATIENT
  Age: 46 Year
  Sex: Female
  Weight: 70 kg

DRUGS (23)
  1. NICARDIPINE [Interacting]
     Active Substance: NICARDIPINE
     Indication: HYPERTENSION
  2. NICARDIPINE [Interacting]
     Active Substance: NICARDIPINE
  3. PROPOFOL. [Concomitant]
     Active Substance: PROPOFOL
  4. LEVOTHYROXINE SODIUM. [Concomitant]
     Active Substance: LEVOTHYROXINE SODIUM
  5. FENTANYL. [Concomitant]
     Active Substance: FENTANYL
  6. VECURONIUM [Concomitant]
     Active Substance: VECURONIUM BROMIDE
     Indication: GENERAL ANAESTHESIA
     Route: 042
  7. VECURONIUM [Concomitant]
     Active Substance: VECURONIUM BROMIDE
     Route: 042
  8. ISOFLURANE. [Concomitant]
     Active Substance: ISOFLURANE
  9. OXYGEN. [Concomitant]
     Active Substance: OXYGEN
  10. LOSARTAN. [Interacting]
     Active Substance: LOSARTAN
     Indication: HYPERTENSION
  11. MIDAZOLAM [Concomitant]
     Active Substance: MIDAZOLAM HYDROCHLORIDE
     Indication: GENERAL ANAESTHESIA
  12. ATENOLOL. [Interacting]
     Active Substance: ATENOLOL
  13. PRAZOSIN. [Interacting]
     Active Substance: PRAZOSIN
  14. LEVOTHYROXINE SODIUM. [Concomitant]
     Active Substance: LEVOTHYROXINE SODIUM
     Indication: HYPOTHYROIDISM
  15. FENTANYL. [Concomitant]
     Active Substance: FENTANYL
     Indication: GENERAL ANAESTHESIA
  16. MIDAZOLAM [Concomitant]
     Active Substance: MIDAZOLAM HYDROCHLORIDE
  17. PROPOFOL. [Concomitant]
     Active Substance: PROPOFOL
     Indication: GENERAL ANAESTHESIA
  18. NITROUS OXIDE. [Concomitant]
     Active Substance: NITROUS OXIDE
  19. PRAZOSIN. [Interacting]
     Active Substance: PRAZOSIN
     Indication: HYPERTENSION
  20. CEFUROXIME. [Suspect]
     Active Substance: CEFUROXIME
     Dosage: 1.5 G DILUTED IN 20 ML OF STERILE WATER
     Route: 042
  21. ATENOLOL. [Interacting]
     Active Substance: ATENOLOL
     Indication: HYPERTENSION
  22. LOSARTAN. [Interacting]
     Active Substance: LOSARTAN
  23. CEFUROXIME. [Suspect]
     Active Substance: CEFUROXIME
     Dosage: 1.5 G DILUTED IN 20 ML OF STERILE WATER
     Route: 042

REACTIONS (3)
  - Bradycardia [Recovered/Resolved]
  - Drug interaction [Recovered/Resolved]
  - Anaphylactic shock [Recovered/Resolved]
